FAERS Safety Report 5692367-1 (Version None)
Quarter: 2008Q2

REPORT INFORMATION
  Report Type: 
  Country: None (occurrence: None)
  Receive Date: 20080328
  Receipt Date: 20080219
  Transmission Date: 20081010
  Serious: Yes (Hospitalization)
  Sender: FDA-Public Use
  Company Number: US-WYE-H02671808

PATIENT
  Age: 72 Year
  Sex: Male

DRUGS (6)
  1. TORISEL [Suspect]
     Indication: RENAL CELL CARCINOMA
     Dosage: 25 MG 1X PER 1 WK, INTRAVENOUS
     Route: 042
     Dates: start: 20080109, end: 20080206
  2. MORPHINE [Concomitant]
  3. COMBIVENT [Concomitant]
  4. NORVASC [Concomitant]
  5. LEXAPRO [Concomitant]
  6. FENTANYL [Concomitant]

REACTIONS (3)
  - BLOOD CREATININE INCREASED [None]
  - NAUSEA [None]
  - VOMITING [None]
